FAERS Safety Report 12607024 (Version 2)
Quarter: 2016Q3

REPORT INFORMATION
  Report Type: Spontaneous
  Country: FR (occurrence: FR)
  Receive Date: 20160729
  Receipt Date: 20160811
  Transmission Date: 20161109
  Serious: Yes (Other)
  Sender: FDA-Public Use
  Company Number: FR-PFIZER INC-3009904

PATIENT
  Age: 2 Year
  Sex: Male
  Weight: 19 kg

DRUGS (8)
  1. VINCRISTINE SULFATE. [Concomitant]
     Active Substance: VINCRISTINE SULFATE
     Indication: BRAIN STEM GLIOMA
     Dosage: UNK UNK, CYCLIC
     Route: 041
     Dates: start: 20150615
  2. MELATONINE [Concomitant]
     Active Substance: MELATONIN
     Dosage: 2 MG, ON THE EVENING
  3. ZOPHREN /00955302/ [Concomitant]
     Active Substance: ONDANSETRON
     Indication: PREMEDICATION
     Dosage: UNK
     Route: 041
     Dates: start: 20150615
  4. L THYROXINE [Concomitant]
     Active Substance: LEVOTHYROXINE SODIUM
     Dosage: 10 GTT, FREQ: 1 DAY; INTERVAL: 1
  5. PLITICAN [Concomitant]
     Active Substance: ALIZAPRIDE HYDROCHLORIDE
     Indication: PREMEDICATION
     Dosage: UNK
     Dates: start: 20150615
  6. CARBOPLATINE HOSPIRA [Suspect]
     Active Substance: CARBOPLATIN
     Indication: BRAIN STEM GLIOMA
     Dosage: 400 MG, DAILY CYCLIC
     Route: 042
     Dates: start: 20150615, end: 20150615
  7. MINRIN MELT [Concomitant]
     Dosage: 60 UG, FREQ: 1 HOUR; INTERVAL: 8 HOURS
  8. LAROXYL [Concomitant]
     Active Substance: AMITRIPTYLINE
     Dosage: 7 GTT, DAILY (1 DROP IN MORNING AND MIDDAY, 5 DROPS IN THE EVENING)

REACTIONS (5)
  - Nausea [Recovered/Resolved]
  - Erythema [Recovered/Resolved]
  - Hypersensitivity [Recovered/Resolved]
  - Pruritus [Recovered/Resolved]
  - Cough [Recovered/Resolved]

NARRATIVE: CASE EVENT DATE: 20150615
